FAERS Safety Report 4765840-8 (Version None)
Quarter: 2005Q3

REPORT INFORMATION
  Report Type: 
  Country: None (occurrence: None)
  Receive Date: 20050906
  Receipt Date: 20050830
  Transmission Date: 20060218
  Serious: Yes (Disabling, Other)
  Sender: FDA-Public Use
  Company Number: FRWYE643804MAY05

PATIENT
  Age: 77 Year
  Sex: Male

DRUGS (8)
  1. EFFEXOR XR [Suspect]
     Indication: DEPRESSION
     Dosage: 75 MG 1X PER 1 DAY, ORAL
     Route: 048
     Dates: start: 20050506, end: 20050506
  2. SKENAN (MORPHINE SULFATE, , 0) [Suspect]
     Indication: PAIN
     Dosage: 30 MG 2X PER 1 DAY, ORAL
     Route: 048
     Dates: start: 20050413
  3. COAPROVEL (IRBESARTAN/HYDROCHLOROTHIAZIDE) [Concomitant]
  4. ASPEGIC 1000 [Concomitant]
  5. LANZOR (LANSOPRAZOLE) [Concomitant]
  6. JOSIR (TAMSULOSIN HYDROCHLORIDE) [Concomitant]
  7. PRIMPERAN TAB [Concomitant]
  8. AMITRIPTYLINE HCL [Concomitant]

REACTIONS (4)
  - ABASIA [None]
  - DYSSTASIA [None]
  - MUSCULAR WEAKNESS [None]
  - TREMOR [None]
